FAERS Safety Report 8174915-5 (Version None)
Quarter: 2012Q1

REPORT INFORMATION
  Report Type: 
  Country: None (occurrence: None)
  Receive Date: 20120229
  Receipt Date: 20110719
  Transmission Date: 20120608
  Serious: No
  Sender: FDA-Public Use
  Company Number: US-GLAXOSMITHKLINE-A0937326A

PATIENT
  Age: 40 Year
  Sex: Female

DRUGS (7)
  1. SYNTHROID [Concomitant]
  2. VALACYCLOVIR [Suspect]
     Indication: HERPES ZOSTER
     Dosage: 500MG PER DAY
     Route: 048
     Dates: start: 20110101, end: 20110704
  3. ADVAIR DISKUS 100/50 [Concomitant]
  4. LIPITOR [Concomitant]
  5. PROZAC [Concomitant]
  6. POTASSIUM CHLORIDE [Concomitant]
  7. TOPAMAX [Concomitant]

REACTIONS (2)
  - THROAT TIGHTNESS [None]
  - PRURITUS [None]
